FAERS Safety Report 15349963 (Version 2)
Quarter: 2019Q2

REPORT INFORMATION
  Report Type: Report from Study
  Country: BR (occurrence: BR)
  Receive Date: 20180904
  Receipt Date: 20190411
  Transmission Date: 20190711
  Serious: Yes (Other)
  Sender: FDA-Public Use
  Company Number: PHHY2014BR021247

PATIENT
  Age: 67 Year
  Sex: Female
  Weight: 79 kg

DRUGS (15)
  1. XOLAIR [Suspect]
     Active Substance: OMALIZUMAB
     Dosage: 2 DF, QMO
     Route: 058
  2. ARCOXIA [Concomitant]
     Active Substance: ETORICOXIB
     Indication: BONE DISORDER
     Dosage: 1 DF, QD
     Route: 048
  3. CALCIUM [Concomitant]
     Active Substance: CALCIUM
     Indication: BONE DISORDER
     Dosage: 1 DF, QD
     Route: 048
     Dates: start: 2012
  4. XOLAIR [Suspect]
     Active Substance: OMALIZUMAB
     Dosage: 300 MG, QMO
     Route: 058
  5. COSENTYX [Suspect]
     Active Substance: SECUKINUMAB
     Indication: PSORIATIC ARTHROPATHY
     Dosage: 2 DF, QMO
     Route: 058
     Dates: start: 20170102
  6. CIMZIA [Concomitant]
     Active Substance: CERTOLIZUMAB PEGOL
     Indication: OSTEOARTHRITIS
     Dosage: UNK, QMO
     Route: 058
     Dates: start: 20131111
  7. CIMZIA [Concomitant]
     Active Substance: CERTOLIZUMAB PEGOL
     Indication: PSORIASIS
  8. ARADOIS [Concomitant]
     Active Substance: LOSARTAN POTASSIUM
     Indication: HYPERTENSION
     Dosage: 1 DF, QD
     Route: 065
     Dates: start: 201410
  9. XOLAIR [Suspect]
     Active Substance: OMALIZUMAB
     Dosage: 2 DF, UNK
     Route: 058
  10. XOLAIR [Suspect]
     Active Substance: OMALIZUMAB
     Dosage: 1 DF, UNK
     Route: 058
  11. XOLAIR [Suspect]
     Active Substance: OMALIZUMAB
     Dosage: UNK
     Route: 058
     Dates: start: 201807
  12. SERETIDE [Concomitant]
     Active Substance: FLUTICASONE PROPIONATE\SALMETEROL XINAFOATE
     Indication: ASTHMA
     Dosage: 1 OT, QD
     Route: 055
  13. XOLAIR [Suspect]
     Active Substance: OMALIZUMAB
     Indication: ASTHMA
     Dosage: 2 DF, QMO
     Route: 058
     Dates: start: 201306
  14. XOLAIR [Suspect]
     Active Substance: OMALIZUMAB
     Dosage: UNK
     Route: 058
     Dates: start: 201806
  15. FORASEQ [Concomitant]
     Active Substance: BUDESONIDE\FORMOTEROL FUMARATE
     Indication: DYSPNOEA
     Dosage: UNK
     Route: 065

REACTIONS (26)
  - Insomnia [Recovered/Resolved]
  - Hypoacusis [Unknown]
  - Immune system disorder [Recovering/Resolving]
  - Somnolence [Not Recovered/Not Resolved]
  - Influenza [Not Recovered/Not Resolved]
  - Concomitant disease aggravated [Not Recovered/Not Resolved]
  - Middle insomnia [Recovering/Resolving]
  - Pyrexia [Recovering/Resolving]
  - Malaise [Recovering/Resolving]
  - Bone pain [Recovering/Resolving]
  - Fatigue [Not Recovered/Not Resolved]
  - Memory impairment [Not Recovered/Not Resolved]
  - Asthma [Not Recovered/Not Resolved]
  - Nightmare [Recovered/Resolved]
  - Sluggishness [Recovering/Resolving]
  - Wheezing [Unknown]
  - Crepitations [Not Recovered/Not Resolved]
  - Urinary tract infection [Unknown]
  - Psoriatic arthropathy [Recovering/Resolving]
  - Cough [Not Recovered/Not Resolved]
  - Agitation [Recovered/Resolved]
  - Sneezing [Unknown]
  - Viral infection [Unknown]
  - Oropharyngeal pain [Not Recovered/Not Resolved]
  - Fall [Recovering/Resolving]
  - Poor quality sleep [Recovering/Resolving]

NARRATIVE: CASE EVENT DATE: 20180809
